FAERS Safety Report 5672387-3 (Version None)
Quarter: 2008Q1

REPORT INFORMATION
  Report Type: 
  Country: None (occurrence: None)
  Receive Date: 20080319
  Receipt Date: 20080313
  Transmission Date: 20080703
  Serious: Yes (Hospitalization)
  Sender: FDA-Public Use
  Company Number: US-ABBOTT-08P-163-0442741-00

PATIENT

DRUGS (3)
  1. HUMIRA [Suspect]
     Indication: CROHN'S DISEASE
     Route: 058
     Dates: start: 20070701, end: 20080213
  2. HUMIRA [Suspect]
     Route: 058
  3. PREDNISONE [Concomitant]
     Indication: CROHN'S DISEASE
     Route: 048

REACTIONS (3)
  - DRUG DOSE OMISSION [None]
  - HYSTERECTOMY [None]
  - INJECTION SITE PAIN [None]
